FAERS Safety Report 4745881-7 (Version None)
Quarter: 2005Q3

REPORT INFORMATION
  Report Type: 
  Country: None (occurrence: None)
  Receive Date: 20050816
  Receipt Date: 20050804
  Transmission Date: 20060218
  Serious: Yes (Other)
  Sender: FDA-Public Use
  Company Number: US-SANOFI-SYNTHELABO-A03200502382

PATIENT
  Sex: Male
  Weight: 105.21 kg

DRUGS (14)
  1. PLAVIX [Suspect]
     Indication: STENT PLACEMENT
     Route: 048
     Dates: start: 20050511
  2. CIPROFLOXACIN HCL [Concomitant]
     Dosage: UNK
     Route: 048
  3. TETRACYCLINE [Concomitant]
     Dosage: UNK
     Route: 048
  4. NOVOLIN [Concomitant]
     Dosage: UNK
     Route: 058
  5. HUMULIN R [Concomitant]
     Dosage: UNK
     Route: 058
  6. TOPROL-XL [Concomitant]
     Dosage: UNK
     Route: 048
  7. NEXIUM [Concomitant]
     Dosage: UNK
     Route: 048
  8. GLYBURIDE [Concomitant]
     Dosage: UNK
     Route: 048
  9. AVANDIA [Concomitant]
     Dosage: UNK
     Route: 048
  10. METFORMIN [Concomitant]
     Dosage: UNK
     Route: 048
  11. ZOCOR [Concomitant]
     Dosage: UNK
     Route: 048
  12. WELLBUTRIN [Concomitant]
     Dosage: UNK
     Route: 048
  13. HYDROCHLOROTHIAZIDE [Concomitant]
     Dosage: UNK
     Route: 048
  14. LOVENOX [Concomitant]
     Dosage: UNK
     Route: 058

REACTIONS (5)
  - INJECTION SITE THROMBOSIS [None]
  - METASTASES TO KIDNEY [None]
  - METASTASES TO LIVER [None]
  - METASTASES TO LUNG [None]
  - SMALL INTESTINE CARCINOMA METASTATIC [None]
